FAERS Safety Report 17053580 (Version 1)
Quarter: 2019Q4

REPORT INFORMATION
  Report Type: Spontaneous
  Country: US (occurrence: US)
  Receive Date: 20191120
  Receipt Date: 20191120
  Transmission Date: 20200122
  Serious: No
  Sender: FDA-Public Use
  Company Number: US-009507513-1910USA014521

PATIENT
  Sex: Male

DRUGS (1)
  1. KEYTRUDA [Suspect]
     Active Substance: PEMBROLIZUMAB
     Indication: METASTATIC MALIGNANT MELANOMA
     Dosage: UNK, EVERY 3 WEEKS
     Route: 042

REACTIONS (2)
  - Feeling cold [Not Recovered/Not Resolved]
  - Skin neoplasm excision [Not Recovered/Not Resolved]

NARRATIVE: CASE EVENT DATE: 201910
